FAERS Safety Report 18532121 (Version 2)
Quarter: 2020Q4

REPORT INFORMATION
  Report Type: Spontaneous
  Country: JP (occurrence: JP)
  Receive Date: 20201123
  Receipt Date: 20201130
  Transmission Date: 20210114
  Serious: Yes (Hospitalization, Other)
  Sender: FDA-Public Use
  Company Number: JP-AMGEN-JPNSP2020185599

PATIENT
  Age: 68 Year
  Sex: Male

DRUGS (1)
  1. PARSABIV [Suspect]
     Active Substance: ETELCALCETIDE HYDROCHLORIDE
     Indication: HYPERPARATHYROIDISM SECONDARY
     Dosage: UNK
     Route: 010
     Dates: start: 20200319

REACTIONS (3)
  - Renal aneurysm [Not Recovered/Not Resolved]
  - Muscle abscess [Not Recovered/Not Resolved]
  - Extradural abscess [Not Recovered/Not Resolved]
